FAERS Safety Report 6031314-X (Version None)
Quarter: 2008Q4

REPORT INFORMATION
  Report Type: 
  Country: None (occurrence: None)
  Receive Date: 20081224
  Receipt Date: 20081001
  Transmission Date: 20090506
  Serious: Yes (Other)
  Sender: FDA-Public Use
  Company Number: US-CVT-080086

PATIENT
  Sex: Male

DRUGS (10)
  1. RANEXA [Suspect]
     Indication: DRUG USE FOR UNKNOWN INDICATION
     Dosage: 500 MG, BID, ORAL
     Route: 048
  2. LEVAQUIN [Suspect]
     Dosage: ORAL
     Route: 048
  3. DIGOXIN /00017701/ (DIGOXIN) [Concomitant]
  4. ALTACE [Concomitant]
  5. ASPIRIN [Concomitant]
  6. SPIRONOLACTONE [Concomitant]
  7. LIPITOR [Concomitant]
  8. QUININE SULPHATE (QUININE SULFATE) [Concomitant]
  9. COUMADIN [Concomitant]
  10. COREG [Concomitant]

REACTIONS (1)
  - VENTRICULAR TACHYCARDIA [None]
